FAERS Safety Report 23530413 (Version 1)
Quarter: 2024Q1

REPORT INFORMATION
  Report Type: Spontaneous
  Country: US (occurrence: US)
  Receive Date: 20240216
  Receipt Date: 20240216
  Transmission Date: 20240409
  Serious: Yes (Hospitalization)
  Sender: FDA-Public Use
  Company Number: US-APOTEX-2012AP001532

PATIENT
  Age: 76 Year
  Sex: Female

DRUGS (3)
  1. AZITHROMYCIN [Suspect]
     Active Substance: AZITHROMYCIN
     Indication: Oropharyngeal pain
     Dosage: UNK
     Route: 065
  2. FLUCONAZOLE [Suspect]
     Active Substance: FLUCONAZOLE
     Indication: Candida infection
     Dosage: UNK
     Route: 065
  3. TOBRADEX [Concomitant]
     Active Substance: DEXAMETHASONE\TOBRAMYCIN
     Indication: Conjunctivitis
     Dosage: UNK
     Route: 047

REACTIONS (6)
  - Acute generalised exanthematous pustulosis [Recovering/Resolving]
  - Syncope [Unknown]
  - Dehydration [Unknown]
  - Orthostatic hypotension [Unknown]
  - Candida infection [Unknown]
  - Conjunctivitis [Unknown]
